FAERS Safety Report 7371078-0 (Version None)
Quarter: 2011Q1

REPORT INFORMATION
  Report Type: 
  Country: None (occurrence: None)
  Receive Date: 20110324
  Receipt Date: 20110301
  Transmission Date: 20110831
  Serious: Yes (Other)
  Sender: FDA-Public Use
  Company Number: US-BAYER-2011-008080

PATIENT
  Sex: Male
  Weight: 80 kg

DRUGS (26)
  1. ALBUMIN (HUMAN) [Concomitant]
     Dosage: 300CC
  2. LEVOPHED [Concomitant]
     Dosage: 20 (?)
     Route: 042
     Dates: start: 20041014, end: 20041014
  3. INSULIN [Concomitant]
     Dosage: UNK
     Route: 042
     Dates: start: 20041014, end: 20041014
  4. TEMAZEPAM [Concomitant]
     Indication: INSOMNIA
     Dosage: 15 MG, QD
     Route: 048
  5. MAGNESIUM SULFATE [Concomitant]
     Dosage: 15 MG, UNK
     Route: 042
     Dates: start: 20041014, end: 20041014
  6. PROPOFOL [Concomitant]
     Dosage: 100 UNK, UNK
     Route: 042
     Dates: start: 20041014, end: 20041014
  7. PROTAMINE SULFATE [Concomitant]
     Dosage: 40 MG (?)
     Route: 042
     Dates: start: 20041014, end: 20041014
  8. SODIUM BICARBONATE [Concomitant]
     Dosage: 50 UNK, UNK
     Route: 042
     Dates: start: 20041014, end: 20041014
  9. LOVASTIN [Concomitant]
     Dosage: 40 MG, QD
     Route: 048
  10. MYLANTA AR [Concomitant]
     Indication: DYSPEPSIA
     Dosage: 15 MG, PRN
     Route: 048
  11. FENTANYL [Concomitant]
     Dosage: 27 MCG (TOTAL)
     Route: 042
     Dates: start: 20041014, end: 20041014
  12. VERSED [Concomitant]
     Dosage: 2 MG, UNK
     Route: 042
     Dates: start: 20041014, end: 20041014
  13. ZANTAC [Concomitant]
     Dosage: 10/50 MG
     Route: 042
     Dates: start: 20041014, end: 20041014
  14. NEXIUM [Concomitant]
     Dosage: 40 MG, QD
     Route: 048
  15. LIDOCAINE [Concomitant]
     Dosage: UNK
     Route: 042
     Dates: start: 20041014, end: 20041014
  16. LOPRESSOR [Concomitant]
     Dosage: 25 MG, QD
     Route: 048
  17. ANCEF [Concomitant]
     Dosage: 2 GMS
     Route: 042
     Dates: start: 20041014, end: 20041014
  18. ASPIRIN [Concomitant]
     Dosage: 80 MG, QD
     Route: 048
  19. REGLAN [Concomitant]
     Dosage: 10/50 MG
     Route: 042
     Dates: start: 20041014, end: 20041014
  20. NEXIUM [Concomitant]
     Dosage: 40 MG, UNK
     Route: 045
     Dates: start: 20041014, end: 20041014
  21. PROCARDIA XL [Concomitant]
     Dosage: 30 MG, QD
     Route: 048
  22. HEPARIN [Concomitant]
     Dosage: 5000 UNITS EVERY 12 HOURS
     Route: 058
  23. TRASYLOL [Suspect]
     Indication: CORONARY ARTERY BYPASS
     Dosage: LOADING DOSE AMOUNT 200CC
     Route: 042
     Dates: start: 20041014, end: 20041014
  24. HEPARIN [Concomitant]
     Dosage: 1000 U
     Route: 042
     Dates: start: 20041014, end: 20041014
  25. LASIX [Concomitant]
     Dosage: 20 MG, UNK
     Route: 042
     Dates: start: 20041014, end: 20041014
  26. CALCIUM CHLORIDE [Concomitant]
     Dosage: UNK
     Route: 042
     Dates: start: 20041014, end: 20041014

REACTIONS (13)
  - RENAL FAILURE [None]
  - UNEVALUABLE EVENT [None]
  - DEPRESSION [None]
  - PAIN [None]
  - NERVOUSNESS [None]
  - RENAL INJURY [None]
  - INJURY [None]
  - FEAR OF DEATH [None]
  - EMOTIONAL DISTRESS [None]
  - DISABILITY [None]
  - MULTI-ORGAN FAILURE [None]
  - ANXIETY [None]
  - FEAR [None]
